FAERS Safety Report 6419144-8 (Version None)
Quarter: 2009Q4

REPORT INFORMATION
  Report Type: 
  Country: None (occurrence: None)
  Receive Date: 20091028
  Receipt Date: 20091028
  Transmission Date: 20100525
  Serious: Yes (Life-Threatening)
  Sender: FDA-Public Use
  Company Number: None

PATIENT
  Sex: Female
  Weight: 81.6475 kg

DRUGS (1)
  1. ENBREL [Suspect]
     Indication: RHEUMATOID ARTHRITIS
     Dosage: 50 MG EVERY WEEK SQ
     Route: 058
     Dates: start: 20031217, end: 20090326

REACTIONS (4)
  - LARGE CELL LUNG CANCER STAGE II [None]
  - NEUROENDOCRINE CARCINOMA [None]
  - OESOPHAGITIS [None]
  - RADIATION PNEUMONITIS [None]
